FAERS Safety Report 23194353 (Version 1)
Quarter: 2023Q4

REPORT INFORMATION
  Report Type: Spontaneous
  Country: JP (occurrence: JP)
  Receive Date: 20231117
  Receipt Date: 20231117
  Transmission Date: 20240110
  Serious: Yes (Hospitalization, Other)
  Sender: FDA-Public Use
  Company Number: JP-JUBILANT CADISTA PHARMACEUTICALS-2023JP001411

PATIENT
  Age: 49 Year
  Sex: Male

DRUGS (8)
  1. LEVOFLOXACIN [Suspect]
     Active Substance: LEVOFLOXACIN
     Indication: Pneumonia
     Dosage: 500 MG PER DAY
  2. NORFLOXACIN [Concomitant]
     Active Substance: NORFLOXACIN
     Indication: Pneumonia
     Dosage: 200 MG PER DAY
  3. CEFTRIAXONE [Concomitant]
     Active Substance: CEFTRIAXONE\CEFTRIAXONE SODIUM
     Indication: Pneumonia
     Dosage: 1 G, TOTAL (1 GRAM/DOSE ONLY ONCE)
  4. FAMOTIDINE [Concomitant]
     Active Substance: FAMOTIDINE
     Indication: Product used for unknown indication
     Dosage: 20 MG PER DAY
  5. CARBOCYSTEINE [Concomitant]
     Active Substance: CARBOCYSTEINE
     Indication: Product used for unknown indication
     Dosage: 1500 MG PER DAY
  6. AMBROXOL [Concomitant]
     Active Substance: AMBROXOL
     Indication: Product used for unknown indication
     Dosage: 45 MG PER DAY
  7. CLOPERASTINE [Concomitant]
     Active Substance: CLOPERASTINE
     Indication: Product used for unknown indication
     Dosage: 30 MG PER DAY
  8. TEPRENONE [Concomitant]
     Active Substance: TEPRENONE
     Indication: Product used for unknown indication
     Dosage: 150 MG PER DAY

REACTIONS (3)
  - Encephalopathy [Recovered/Resolved]
  - Agnosia [Recovered/Resolved]
  - Apraxia [Recovered/Resolved]
